FAERS Safety Report 7721451-3 (Version None)
Quarter: 2011Q3

REPORT INFORMATION
  Report Type: 
  Country: None (occurrence: None)
  Receive Date: 20110831
  Receipt Date: 20110823
  Transmission Date: 20111222
  Serious: Yes (Other)
  Sender: FDA-Public Use
  Company Number: NL-TEVA-298219ISR

PATIENT
  Age: 43 Month
  Sex: Female

DRUGS (1)
  1. PROPRANOLOL [Suspect]

REACTIONS (2)
  - HYPOTONIA [None]
  - PALLOR [None]
